FAERS Safety Report 9061740 (Version 4)
Quarter: 2013Q1

REPORT INFORMATION
  Report Type: Spontaneous
  Country: GB (occurrence: GB)
  Receive Date: 20130204
  Receipt Date: 20130318
  Transmission Date: 20140127
  Serious: Yes (Other)
  Sender: FDA-Public Use
  Company Number: PHFR2013GB000918

PATIENT
  Sex: Male

DRUGS (3)
  1. CLOZARIL [Suspect]
     Indication: SCHIZOPHRENIA
     Dosage: UNK
     Route: 048
     Dates: start: 20120817
  2. CLOZARIL [Suspect]
     Dosage: 350 MG
  3. CLOZARIL [Suspect]
     Dosage: 300 MG
     Dates: end: 20130206

REACTIONS (10)
  - Myopathy [Not Recovered/Not Resolved]
  - Muscle atrophy [Not Recovered/Not Resolved]
  - Muscular weakness [Not Recovered/Not Resolved]
  - Asthenia [Recovering/Resolving]
  - Gait disturbance [Not Recovered/Not Resolved]
  - Fall [Recovering/Resolving]
  - Hypotension [Recovering/Resolving]
  - Dizziness [Unknown]
  - Blood creatine phosphokinase increased [Recovered/Resolved]
  - Blood cholesterol increased [Unknown]
